FAERS Safety Report 4301910-6 (Version None)
Quarter: 2004Q1

REPORT INFORMATION
  Report Type: 
  Country: None (occurrence: None)
  Receive Date: 20040218
  Receipt Date: 20031226
  Transmission Date: 20041129
  Serious: Yes (Hospitalization)
  Sender: FDA-Public Use
  Company Number: 200319356US

PATIENT
  Age: 45 Year
  Sex: Female
  Weight: 86.4 kg

DRUGS (4)
  1. LANTUS [Suspect]
     Indication: DIABETES MELLITUS NON-INSULIN-DEPENDENT
     Dosage: 80 MG QD
     Dates: end: 20030827
  2. ALBUTEROL [Concomitant]
  3. NEURONTIN [Concomitant]
  4. PREDNISONE [Concomitant]

REACTIONS (3)
  - HYPOGLYCAEMIA [None]
  - HYPOGLYCAEMIC COMA [None]
  - LOSS OF CONSCIOUSNESS [None]
